FAERS Safety Report 17376581 (Version 2)
Quarter: 2020Q1

REPORT INFORMATION
  Report Type: Spontaneous
  Country: GB (occurrence: GB)
  Receive Date: 20200206
  Receipt Date: 20200214
  Transmission Date: 20200409
  Serious: Yes (Other)
  Sender: FDA-Public Use
  Company Number: NVSC2020GB028095

PATIENT

DRUGS (3)
  1. CYCLOPHOSPHAMIDE. [Concomitant]
     Active Substance: CYCLOPHOSPHAMIDE
     Indication: CHEMOTHERAPY
     Dosage: 1000 MG/M2
     Route: 065
  2. KYMRIAH [Suspect]
     Active Substance: TISAGENLECLEUCEL
     Indication: ACUTE LYMPHOCYTIC LEUKAEMIA
     Dosage: 1.7 X 10E6/KG
     Route: 065
  3. FLUDARABINE [Concomitant]
     Active Substance: FLUDARABINE PHOSPHATE
     Indication: CHEMOTHERAPY
     Dosage: 120 MG/M2
     Route: 065

REACTIONS (7)
  - Dysuria [Unknown]
  - Bone pain [Recovered/Resolved]
  - Eosinophil count increased [Recovered/Resolved]
  - Blood immunoglobulin G decreased [Unknown]
  - Skin mass [Recovered/Resolved]
  - Cytokine release syndrome [Recovered/Resolved]
  - Haematuria [Recovered/Resolved]
